FAERS Safety Report 9747262 (Version 1)
Quarter: 2013Q4

REPORT INFORMATION
  Report Type: Report from Study
  Country: CN (occurrence: CN)
  Receive Date: 20131212
  Receipt Date: 20131212
  Transmission Date: 20140711
  Serious: Yes (Other)
  Sender: FDA-Public Use
  Company Number: CN-ROCHE-1318177

PATIENT
  Age: 70 Year
  Sex: Male
  Weight: 61.5 kg

DRUGS (1)
  1. MABTHERA [Suspect]
     Indication: DIFFUSE LARGE B-CELL LYMPHOMA
     Route: 041
     Dates: start: 2011

REACTIONS (2)
  - Neoplasm [Not Recovered/Not Resolved]
  - Drug ineffective [Unknown]
